FAERS Safety Report 4824180-9 (Version None)
Quarter: 2005Q4

REPORT INFORMATION
  Report Type: 
  Country: None (occurrence: None)
  Receive Date: 20051108
  Receipt Date: 20051026
  Transmission Date: 20060501
  Serious: Yes (Other)
  Sender: FDA-Public Use
  Company Number: CHNY2005CA01971

PATIENT
  Age: 24 Month
  Sex: Female
  Weight: 13.6 kg

DRUGS (1)
  1. TRIAMINIC VAPOR PATCH UNKNOWN (NCH)(MENTHOL, CAMPHOR) TRANS-THERAPEUTI [Suspect]
     Indication: RHINORRHOEA
     Dosage: 1 DF, ONCE/SINGLE, VIA FALSA
     Dates: start: 20051025

REACTIONS (4)
  - ACCIDENTAL DRUG INTAKE BY CHILD [None]
  - CONVULSION [None]
  - SLEEP DISORDER [None]
  - VOMITING [None]
